FAERS Safety Report 8967101 (Version 1)
Quarter: 2012Q4

REPORT INFORMATION
  Report Type: 
  Country: IT (occurrence: IT)
  Receive Date: 20121214
  Receipt Date: 20121214
  Transmission Date: 20130627
  Serious: Yes (Hospitalization)
  Sender: FDA-Public Use
  Company Number: IT-MYLANLABS-2012S1025003

PATIENT
  Age: 27 Year
  Sex: Male

DRUGS (1)
  1. OLANZAPINE [Suspect]
     Indication: PRODUCT USED FOR UNKNOWN INDICATION
     Route: 048
     Dates: start: 20121106, end: 20121106

REACTIONS (4)
  - Drug abuse [Unknown]
  - Toxicity to various agents [Unknown]
  - Overdose [Unknown]
  - Sopor [Unknown]
